FAERS Safety Report 16019827 (Version 4)
Quarter: 2020Q1

REPORT INFORMATION
  Report Type: Spontaneous
  Country: US (occurrence: US)
  Receive Date: 20190228
  Receipt Date: 20200204
  Transmission Date: 20200409
  Serious: Yes (Other)
  Sender: FDA-Public Use
  Company Number: US-ASTRAZENECA-2018SF26169

PATIENT
  Age: 24635 Day
  Sex: Female
  Weight: 83.5 kg

DRUGS (16)
  1. FENOFIBRATE. [Concomitant]
     Active Substance: FENOFIBRATE
  2. VICTOZA [Concomitant]
     Active Substance: LIRAGLUTIDE
  3. CIPROFLOXACIN. [Concomitant]
     Active Substance: CIPROFLOXACIN
  4. OMEPRAZOLE. [Suspect]
     Active Substance: OMEPRAZOLE
     Indication: GASTROOESOPHAGEAL REFLUX DISEASE
     Route: 065
     Dates: start: 20130426, end: 20180823
  5. OMEPRAZOLE. [Suspect]
     Active Substance: OMEPRAZOLE
     Indication: GASTROOESOPHAGEAL REFLUX DISEASE
     Route: 048
     Dates: start: 20170213
  6. CEPHALEXIN. [Concomitant]
     Active Substance: CEPHALEXIN
  7. MELOXICAM. [Concomitant]
     Active Substance: MELOXICAM
  8. NEXIUM [Suspect]
     Active Substance: ESOMEPRAZOLE MAGNESIUM
     Indication: GASTROOESOPHAGEAL REFLUX DISEASE
     Route: 048
     Dates: start: 20140101, end: 20181231
  9. GLIMEPIRIDE. [Concomitant]
     Active Substance: GLIMEPIRIDE
  10. GABAPENTIN. [Concomitant]
     Active Substance: GABAPENTIN
  11. ACARBOSE. [Concomitant]
     Active Substance: ACARBOSE
  12. SIMVASTATIN. [Concomitant]
     Active Substance: SIMVASTATIN
  13. ACARBOSE. [Concomitant]
     Active Substance: ACARBOSE
     Route: 048
     Dates: start: 20170220
  14. ATORVASTATIN CALCIUM. [Concomitant]
     Active Substance: ATORVASTATIN CALCIUM
  15. ENALAPRIL [Concomitant]
     Active Substance: ENALAPRIL
  16. JANUVIA [Concomitant]
     Active Substance: SITAGLIPTIN PHOSPHATE

REACTIONS (2)
  - Renal injury [Unknown]
  - Chronic kidney disease [Not Recovered/Not Resolved]

NARRATIVE: CASE EVENT DATE: 20150421
